FAERS Safety Report 4533332-7 (Version None)
Quarter: 2004Q4

REPORT INFORMATION
  Report Type: 
  Country: None (occurrence: None)
  Receive Date: 20041206
  Receipt Date: 20040830
  Transmission Date: 20050328
  Serious: No
  Sender: FDA-Public Use
  Company Number: USA040876784

PATIENT
  Age: 42 Year
  Sex: Female

DRUGS (4)
  1. CYMBALTA [Suspect]
     Indication: DEPRESSION
     Dosage: 30 MG DAY
     Dates: start: 20040824
  2. PROZAC [Suspect]
     Indication: DEPRESSION
     Dosage: 20 MG DAY
     Dates: start: 19880101, end: 19970101
  3. DILANTIN [Concomitant]
  4. ADDERALL 10 [Concomitant]

REACTIONS (6)
  - BLOOD GLUCOSE DECREASED [None]
  - CHRONIC SINUSITIS [None]
  - CRYING [None]
  - DRUG INEFFECTIVE [None]
  - SEDATION [None]
  - SOMNOLENCE [None]
